FAERS Safety Report 15408396 (Version 1)
Quarter: 2018Q3

REPORT INFORMATION
  Report Type: Spontaneous
  Country: JP (occurrence: JP)
  Receive Date: 20180920
  Receipt Date: 20180920
  Transmission Date: 20181010
  Serious: Yes (Hospitalization)
  Sender: FDA-Public Use
  Company Number: JP-EISAI MEDICAL RESEARCH-EC-2018-045341

PATIENT
  Weight: 65 kg

DRUGS (1)
  1. LENVIMA [Suspect]
     Active Substance: LENVATINIB
     Indication: HEPATOCELLULAR CARCINOMA
     Route: 048
     Dates: start: 20180613, end: 20180905

REACTIONS (3)
  - Ascites [Not Recovered/Not Resolved]
  - Hypothyroidism [Unknown]
  - Fatigue [Unknown]

NARRATIVE: CASE EVENT DATE: 20180905
